FAERS Safety Report 5476075-8 (Version None)
Quarter: 2007Q4

REPORT INFORMATION
  Report Type: 
  Country: None (occurrence: None)
  Receive Date: 20071003
  Receipt Date: 20070925
  Transmission Date: 20080405
  Serious: Yes (Life-Threatening, Hospitalization)
  Sender: FDA-Public Use
  Company Number: FR-SANOFI-SYNTHELABO-A01200710114

PATIENT
  Sex: Male

DRUGS (3)
  1. LIPANTHYL [Concomitant]
     Indication: DRUG USE FOR UNKNOWN INDICATION
     Dosage: UNK
     Route: 065
  2. PLAVIX [Suspect]
     Indication: AORTIC ANEURYSM
     Route: 048
     Dates: start: 20060101, end: 20070727
  3. PREVISCAN [Suspect]
     Indication: PHLEBITIS
     Dosage: UNK
     Route: 065
     Dates: start: 20070101, end: 20070727

REACTIONS (2)
  - CEREBRAL HAEMATOMA [None]
  - PHLEBITIS [None]
